FAERS Safety Report 6823610-0 (Version None)
Quarter: 2010Q3

REPORT INFORMATION
  Report Type: 
  Country: None (occurrence: None)
  Receive Date: 20100708
  Receipt Date: 20060812
  Transmission Date: 20110219
  Serious: No
  Sender: FDA-Public Use
  Company Number: US-PFIZER INC-2006099934

PATIENT
  Sex: Female
  Weight: 49.9 kg

DRUGS (4)
  1. CHANTIX [Suspect]
     Indication: SMOKING CESSATION THERAPY
     Route: 048
     Dates: start: 20060101
  2. THYROID TAB [Concomitant]
     Route: 048
  3. ESTRADIOL [Concomitant]
     Route: 048
  4. CELEXA [Concomitant]
     Route: 048

REACTIONS (1)
  - STOMATITIS [None]
